FAERS Safety Report 5839114-8 (Version None)
Quarter: 2008Q3

REPORT INFORMATION
  Report Type: 
  Country: None (occurrence: None)
  Receive Date: 20080808
  Receipt Date: 20080730
  Transmission Date: 20090109
  Serious: Yes (Hospitalization)
  Sender: FDA-Public Use
  Company Number: US-ABBOTT-08P-163-0467975-00

PATIENT
  Sex: Female
  Weight: 63.56 kg

DRUGS (6)
  1. HUMIRA [Suspect]
     Indication: POLYARTHRITIS
     Dates: start: 20070101, end: 20080101
  2. HUMIRA [Suspect]
     Dates: end: 20060901
  3. DICLOFENAC DIETHYLAMINE [Concomitant]
     Indication: DRUG USE FOR UNKNOWN INDICATION
     Route: 048
  4. SULFASALAZINE [Concomitant]
     Indication: ARTHRITIS
     Route: 048
     Dates: start: 20080601
  5. ALPRAZOLAM [Concomitant]
     Indication: INSOMNIA
     Dosage: 0.5-1MG DAILY
     Route: 048
  6. ACETAMINOPHEN W/ PROPOXYPHENE HCL [Concomitant]
     Indication: PAIN
     Dosage: 1-4 EVERY FOUR HOURS
     Route: 048

REACTIONS (3)
  - ARTHRALGIA [None]
  - HIP ARTHROPLASTY [None]
  - NODULE ON EXTREMITY [None]
